FAERS Safety Report 4429719-3 (Version None)
Quarter: 2004Q3

REPORT INFORMATION
  Report Type: 
  Country: None (occurrence: None)
  Receive Date: 20040820
  Receipt Date: 20040811
  Transmission Date: 20050211
  Serious: Yes (Hospitalization)
  Sender: FDA-Public Use
  Company Number: CA-JNJFOC-20040704519

PATIENT
  Sex: Male
  Weight: 111.9 kg

DRUGS (14)
  1. REMICADE [Suspect]
     Dosage: EVERY FOUR WEEKS
     Route: 042
  2. PLAQUENIL [Concomitant]
     Route: 049
  3. PANTOLOC [Concomitant]
     Route: 049
  4. CELEBREX [Concomitant]
     Route: 049
  5. METHOTREXATE [Concomitant]
     Route: 049
  6. LEUCOVORIN [Concomitant]
  7. ENTROPHEN [Concomitant]
  8. METOPROLOL [Concomitant]
  9. NITRO [Concomitant]
  10. STEROIDS [Concomitant]
  11. FOLIC ACID [Concomitant]
  12. ASPIRIN [Concomitant]
  13. AMOXICILLIN AND CLAVULANATE POTASSIUM [Concomitant]
  14. AMOXICILLIN AND CLAVULANATE POTASSIUM [Concomitant]

REACTIONS (4)
  - COUGH [None]
  - DRUG INEFFECTIVE [None]
  - HEADACHE [None]
  - PLEURAL EFFUSION [None]
